FAERS Safety Report 16143116 (Version 1)
Quarter: 2019Q2

REPORT INFORMATION
  Report Type: Spontaneous
  Country: FR (occurrence: FR)
  Receive Date: 20190401
  Receipt Date: 20190401
  Transmission Date: 20190711
  Serious: Yes (Hospitalization)
  Sender: FDA-Public Use
  Company Number: FR-ASTRAZENECA-2019SE50118

PATIENT
  Age: 42 Year
  Sex: Male

DRUGS (5)
  1. XEROQUEL [Suspect]
     Active Substance: QUETIAPINE FUMARATE
     Indication: DEPRESSION
     Route: 048
     Dates: start: 201806
  2. VALIUM [Concomitant]
     Active Substance: DIAZEPAM
  3. XEROQUEL [Suspect]
     Active Substance: QUETIAPINE FUMARATE
     Indication: DEPRESSION
     Route: 048
     Dates: start: 2014
  4. RISPERIDONE. [Concomitant]
     Active Substance: RISPERIDONE
  5. XEROQUEL [Suspect]
     Active Substance: QUETIAPINE FUMARATE
     Indication: DEPRESSION
     Route: 048

REACTIONS (4)
  - Constipation [Recovered/Resolved]
  - Hepatocellular injury [Unknown]
  - Transaminases increased [Unknown]
  - Pain in extremity [Unknown]
